FAERS Safety Report 13682486 (Version 1)
Quarter: 2017Q2

REPORT INFORMATION
  Report Type: Spontaneous
  Country: US (occurrence: US)
  Receive Date: 20170622
  Receipt Date: 20170622
  Transmission Date: 20170830
  Serious: No
  Sender: FDA-Public Use
  Company Number: None

PATIENT
  Sex: Male

DRUGS (1)
  1. TETRABENAZINE 25MG VALEANT PHARMAS NORTH [Suspect]
     Active Substance: TETRABENAZINE
     Indication: DYSKINESIA
     Dosage: 1-25MG TAB
     Route: 048

REACTIONS (5)
  - Dizziness [None]
  - Crying [None]
  - Disorientation [None]
  - Weight decreased [None]
  - Condition aggravated [None]
